FAERS Safety Report 4665458-1 (Version None)
Quarter: 2005Q2

REPORT INFORMATION
  Report Type: 
  Country: None (occurrence: None)
  Receive Date: 20050518
  Receipt Date: 20050518
  Transmission Date: 20051028
  Serious: No
  Sender: FDA-Public Use
  Company Number: None

PATIENT
  Sex: Male

DRUGS (3)
  1. OXALIPLATIN [Suspect]
     Indication: COLORECTAL CANCER
     Dosage: 65 MG/M2 IV INFUSED OVER 120 MINUTES
     Route: 042
     Dates: start: 20041013
  2. LEUCOVORIN CALCIUM [Suspect]
     Dosage: 400 MG/M2 IV OVER 2 HRS POST OXALIPLATIN ADMIN
     Route: 042
  3. FLUOROURACIL [Suspect]
     Dosage: 400 MG/M2 IV BOLUS INJECT, POST LV ADMIN, THEN 2400 MG/M2 CONTINUOUS INFUSION OVER 46-48 HOURS
     Route: 040

REACTIONS (19)
  - ABDOMINAL DISCOMFORT [None]
  - ABDOMINAL PAIN [None]
  - ANOREXIA [None]
  - ATELECTASIS [None]
  - COLONIC OBSTRUCTION [None]
  - DIARRHOEA [None]
  - DYSAESTHESIA [None]
  - DYSURIA [None]
  - FATIGUE [None]
  - HAEMOGLOBIN DECREASED [None]
  - ILEUS [None]
  - LUNG INFILTRATION [None]
  - NAUSEA [None]
  - NEUROPATHY PERIPHERAL [None]
  - NEUTROPENIA [None]
  - PYREXIA [None]
  - RESPIRATORY RATE INCREASED [None]
  - VOMITING [None]
  - WHITE BLOOD CELL COUNT DECREASED [None]
